FAERS Safety Report 4849122-1 (Version None)
Quarter: 2005Q4

REPORT INFORMATION
  Report Type: 
  Country: None (occurrence: None)
  Receive Date: 20051209
  Receipt Date: 20051202
  Transmission Date: 20060501
  Serious: Yes (Hospitalization)
  Sender: FDA-Public Use
  Company Number: AUV-217

PATIENT
  Sex: Male

DRUGS (1)
  1. LAMIVUDINE [Suspect]
     Route: 048
     Dates: start: 20040811

REACTIONS (3)
  - LYMPHADENITIS [None]
  - LYMPHOEDEMA [None]
  - LYMPHOMA [None]
